FAERS Safety Report 6379052-8 (Version None)
Quarter: 2009Q3

REPORT INFORMATION
  Report Type: 
  Country: None (occurrence: None)
  Receive Date: 20090928
  Receipt Date: 20090918
  Transmission Date: 20100115
  Serious: Yes (Hospitalization)
  Sender: FDA-Public Use
  Company Number: JP-BAYER-200910849BYL

PATIENT
  Age: 16 Year
  Sex: Male
  Weight: 53 kg

DRUGS (11)
  1. FLUDARA [Suspect]
     Indication: APLASTIC ANAEMIA
     Dosage: AS USED: 48 MG  UNIT DOSE: 50 MG
     Route: 041
     Dates: start: 20081204, end: 20081207
  2. SANDIMMUNE [Suspect]
     Route: 041
     Dates: start: 20081209, end: 20090209
  3. NEORAL [Suspect]
     Route: 048
     Dates: start: 20090209, end: 20090209
  4. ENDOXAN [Concomitant]
     Indication: APLASTIC ANAEMIA
     Dosage: AS USED: 1200 MG
     Route: 041
     Dates: start: 20081204, end: 20081207
  5. LYMPHOGLOBULINE [Concomitant]
     Indication: APLASTIC ANAEMIA
     Dosage: AS USED: 125 MG
     Route: 041
     Dates: start: 20081204, end: 20081207
  6. METHOTREXATE [Concomitant]
     Route: 041
     Dates: start: 20081211, end: 20081211
  7. METHOTREXATE [Concomitant]
     Route: 041
     Dates: start: 20081213, end: 20081213
  8. METHOTREXATE [Concomitant]
     Route: 041
     Dates: start: 20081216, end: 20081216
  9. GRAN [Concomitant]
     Route: 041
     Dates: start: 20081211, end: 20090104
  10. GRAN [Concomitant]
     Route: 041
     Dates: start: 20090119, end: 20090121
  11. UROMITEXAN [Concomitant]
     Route: 041
     Dates: start: 20081204, end: 20081207

REACTIONS (8)
  - BLOOD ALKALINE PHOSPHATASE INCREASED [None]
  - BLOOD LACTATE DEHYDROGENASE INCREASED [None]
  - BLOOD POTASSIUM INCREASED [None]
  - BRONCHITIS CHRONIC [None]
  - DIARRHOEA [None]
  - EOSINOPHIL COUNT INCREASED [None]
  - RASH [None]
  - SINUSITIS [None]
